FAERS Safety Report 7913992-0 (Version None)
Quarter: 2011Q4

REPORT INFORMATION
  Report Type: 
  Country: None (occurrence: None)
  Receive Date: 20111115
  Receipt Date: 20111101
  Transmission Date: 20120403
  Serious: No
  Sender: FDA-Public Use
  Company Number: US-B.I. PHARMACEUTICALS,INC./RIDGEFIELD-2011-BP-25500BP

PATIENT
  Sex: Male

DRUGS (14)
  1. ASCORBIC ACID [Concomitant]
     Indication: ROUTINE HEALTH MAINTENANCE
     Dates: start: 19980101
  2. FISH OIL [Concomitant]
     Indication: ROUTINE HEALTH MAINTENANCE
     Dates: start: 19980101
  3. FOLIC ACID [Concomitant]
     Indication: ROUTINE HEALTH MAINTENANCE
     Dates: start: 19980101
  4. SYNTHROID [Concomitant]
     Indication: HYPOTHYROIDISM
     Dates: start: 20060101
  5. ASPIRIN [Concomitant]
     Indication: ATRIAL FIBRILLATION
     Dosage: 81 MG
  6. ZOCOR [Concomitant]
     Indication: BLOOD CHOLESTEROL
     Dates: start: 20050101
  7. ALLOPURINOL [Concomitant]
     Indication: GOUT
     Dates: start: 20010101
  8. PRADAXA [Suspect]
     Indication: ATRIAL FIBRILLATION
     Dosage: 150 MG
     Dates: start: 20110701, end: 20111029
  9. VITAMIN B-12 [Concomitant]
     Indication: ROUTINE HEALTH MAINTENANCE
     Dates: start: 19980101
  10. COREG [Concomitant]
     Indication: ATRIAL FIBRILLATION
     Dates: start: 20050101
  11. LISINOPRIL [Concomitant]
     Indication: HYPERTENSION
     Dates: start: 20010101
  12. VITAMIN D [Concomitant]
     Indication: ROUTINE HEALTH MAINTENANCE
     Dates: start: 19980101
  13. JANUVIA [Concomitant]
     Indication: TYPE 2 DIABETES MELLITUS
     Dates: start: 20060101
  14. AMARYL [Concomitant]
     Indication: TYPE 2 DIABETES MELLITUS
     Dates: start: 20060101

REACTIONS (6)
  - URTICARIA [None]
  - RASH [None]
  - PRURITUS [None]
  - SWELLING FACE [None]
  - SWELLING [None]
  - EYE SWELLING [None]
